FAERS Safety Report 16403644 (Version 1)
Quarter: 2019Q3

REPORT INFORMATION
  Report Type: Spontaneous
  Country: US (occurrence: US)
  Receive Date: 20190606
  Receipt Date: 20190606
  Transmission Date: 20191004
  Serious: Yes (Disabling)
  Sender: FDA-Public Use
  Company Number: None

PATIENT
  Age: 47 Year
  Sex: Female
  Weight: 81 kg

DRUGS (7)
  1. JUST RECENTLY STARTED MAGNESIUM [Concomitant]
  2. MULTI VITAMIN [Concomitant]
     Active Substance: VITAMINS
  3. VITAMIN D3 [Concomitant]
     Active Substance: CHOLECALCIFEROL
  4. ECHINACEA [Concomitant]
     Active Substance: ECHINACEA, UNSPECIFIED
  5. TUMERIC [Concomitant]
     Active Substance: HERBALS\TURMERIC
  6. CIPROFLOXACIN. [Suspect]
     Active Substance: CIPROFLOXACIN
     Indication: BRONCHITIS
     Route: 048
  7. CIPROFLOXACIN. [Suspect]
     Active Substance: CIPROFLOXACIN
     Indication: URINARY TRACT INFECTION
     Route: 048

REACTIONS (30)
  - Tendonitis [None]
  - Hyperhidrosis [None]
  - Saccadic eye movement [None]
  - Back pain [None]
  - Memory impairment [None]
  - Sleep disorder [None]
  - Visual impairment [None]
  - Muscle spasms [None]
  - Fatigue [None]
  - Asthenia [None]
  - Gait disturbance [None]
  - Muscle fatigue [None]
  - Disorientation [None]
  - Panic attack [None]
  - Intervertebral disc disorder [None]
  - Hyperaesthesia [None]
  - Loss of personal independence in daily activities [None]
  - Bursitis [None]
  - Paraesthesia [None]
  - Amnesia [None]
  - Repetitive strain injury [None]
  - Hypokinesia [None]
  - Hypertension [None]
  - Headache [None]
  - Dizziness [None]
  - Hunger [None]
  - Arthropathy [None]
  - Joint injury [None]
  - Palpitations [None]
  - Vision blurred [None]

NARRATIVE: CASE EVENT DATE: 20130430
